FAERS Safety Report 20750027 (Version 1)
Quarter: 2022Q2

REPORT INFORMATION
  Report Type: Spontaneous
  Country: US (occurrence: None)
  Receive Date: 20220425
  Receipt Date: 20220425
  Transmission Date: 20220721
  Serious: Yes (Other)
  Sender: FDA-Public Use
  Company Number: None

PATIENT
  Age: 57 Year
  Sex: Male
  Weight: 99 kg

DRUGS (4)
  1. VARENICLINE [Suspect]
     Active Substance: VARENICLINE
     Indication: Ex-tobacco user
     Dosage: OTHER QUANTITY : 1 TABLET(S);?FREQUENCY : TWICE A DAY;?
     Route: 048
     Dates: start: 20211026, end: 20220411
  2. Prescription Vitamin D2 [Concomitant]
  3. BENADRYL [Concomitant]
     Active Substance: DIPHENHYDRAMINE HYDROCHLORIDE
  4. VALERIAN [Concomitant]
     Active Substance: VALERIAN

REACTIONS (8)
  - Depression [None]
  - Anxiety [None]
  - Hostility [None]
  - Agitation [None]
  - Suicidal ideation [None]
  - Withdrawal syndrome [None]
  - Insomnia [None]
  - Anger [None]

NARRATIVE: CASE EVENT DATE: 20220202
